FAERS Safety Report 7621014-4 (Version None)
Quarter: 2011Q3

REPORT INFORMATION
  Report Type: 
  Country: None (occurrence: None)
  Receive Date: 20110719
  Receipt Date: 20100902
  Transmission Date: 20111222
  Serious: No
  Sender: FDA-Public Use
  Company Number: US-KINGPHARMUSA00001-K201001109

PATIENT
  Sex: Female
  Weight: 108.84 kg

DRUGS (3)
  1. LEVOXYL [Suspect]
     Indication: HYPOTHYROIDISM
     Dosage: 50 MCG, QD
     Route: 048
     Dates: start: 20100114
  2. LEVOXYL [Suspect]
     Dosage: 50 MCG, QD
     Route: 048
     Dates: start: 20100114
  3. MICARDIS [Concomitant]
     Indication: HYPERTENSION
     Dosage: UNK

REACTIONS (5)
  - NAIL GROWTH ABNORMAL [None]
  - FEELING COLD [None]
  - FEELING HOT [None]
  - WEIGHT FLUCTUATION [None]
  - ONYCHOCLASIS [None]
